FAERS Safety Report 7758956-5 (Version None)
Quarter: 2011Q3

REPORT INFORMATION
  Report Type: 
  Country: None (occurrence: None)
  Receive Date: 20110919
  Receipt Date: 20110907
  Transmission Date: 20111222
  Serious: Yes (Hospitalization, Other)
  Sender: FDA-Public Use
  Company Number: US-ELI_LILLY_AND_COMPANY-US201102003023

PATIENT
  Sex: Female

DRUGS (15)
  1. FORTEO [Suspect]
     Dosage: 20 UG, QD
     Route: 058
  2. FUROSEMIDE [Concomitant]
     Dosage: 20 MG, QD
  3. PROTONIX [Concomitant]
     Dosage: 40 MG, QD
  4. MORPHINE                           /00036301/ [Concomitant]
     Dates: start: 20110207
  5. COREG [Concomitant]
     Indication: BLOOD PRESSURE
  6. TYLENOL                                 /SCH/ [Concomitant]
     Dosage: 500 MG, OTHER
  7. MULTI-VITAMIN [Concomitant]
  8. ANTIBIOTICS [Concomitant]
  9. FORTEO [Suspect]
     Indication: OSTEOPOROSIS
     Dosage: 20 UG, DAILY (1/D)
     Route: 058
     Dates: start: 20110201
  10. FORTEO [Suspect]
     Dosage: 20 UG, DAILY (1/D)
     Route: 058
  11. OXYGEN [Concomitant]
     Dates: start: 20090101
  12. VITAMIN D [Concomitant]
  13. ZOLOFT [Concomitant]
     Dosage: 100 MG, QD
  14. KLOR-CON M20 [Concomitant]
  15. AMITRIPTYLINE HCL [Concomitant]
     Dosage: 25 MG, QD

REACTIONS (10)
  - SYNCOPE [None]
  - ABDOMINAL PAIN [None]
  - CHRONIC OBSTRUCTIVE PULMONARY DISEASE [None]
  - MUSCLE STRAIN [None]
  - MOVEMENT DISORDER [None]
  - BLOOD PRESSURE DECREASED [None]
  - BACK PAIN [None]
  - MIGRAINE [None]
  - INTERVERTEBRAL DISC COMPRESSION [None]
  - MALAISE [None]
